FAERS Safety Report 10565984 (Version 2)
Quarter: 2014Q4

REPORT INFORMATION
  Report Type: Spontaneous
  Country: DE (occurrence: DE)
  Receive Date: 20141105
  Receipt Date: 20141118
  Transmission Date: 20150529
  Serious: Yes (Hospitalization)
  Sender: FDA-Public Use
  Company Number: DE-MERCK-1411DEU000944

PATIENT
  Age: 84 Year
  Sex: Female
  Weight: 90 kg

DRUGS (7)
  1. TORSEMIDE. [Concomitant]
     Active Substance: TORSEMIDE
     Indication: CARDIAC FAILURE
     Dosage: 1X1 DAILY ONGOING
  2. ASPIRIN. [Concomitant]
     Active Substance: ASPIRIN
     Indication: ARTERIOSCLEROSIS
     Dosage: 1X1 DAILY ONGOING
  3. NEBIVOLOL [Concomitant]
     Active Substance: NEBIVOLOL
     Indication: HYPERTENSION
     Dosage: 1X1 DAILY ONGOING
  4. SIMVASTATIN. [Concomitant]
     Active Substance: SIMVASTATIN
     Indication: HYPERLIPIDAEMIA
     Dosage: 1X1 DAILY ONGOING
     Route: 048
  5. CANDESARTAN [Concomitant]
     Active Substance: CANDESARTAN
     Indication: HYPERTENSION
     Dosage: 2X1 DAILY ONGOING
  6. JANUVIA [Suspect]
     Active Substance: SITAGLIPTIN PHOSPHATE
     Indication: DIABETES MELLITUS
     Dosage: UNK
     Route: 048
     Dates: end: 20141002
  7. EBRANTIL RETARD [Concomitant]
     Indication: HYPERTENSION
     Dosage: 3X1 DAILY ONGOING

REACTIONS (2)
  - Lichenoid keratosis [Unknown]
  - Drug eruption [Unknown]

NARRATIVE: CASE EVENT DATE: 20141002
